FAERS Safety Report 12163958 (Version 1)
Quarter: 2016Q1

REPORT INFORMATION
  Report Type: Spontaneous
  Country: DE (occurrence: DE)
  Receive Date: 20160309
  Receipt Date: 20160309
  Transmission Date: 20160526
  Serious: Yes (Other)
  Sender: FDA-Public Use
  Company Number: ALCN2016DE001610

PATIENT
  Age: 74 Year
  Sex: Female

DRUGS (1)
  1. VITALUX PLUS [Suspect]
     Active Substance: VITAMINS
     Indication: DRY AGE-RELATED MACULAR DEGENERATION
     Dosage: UNK
     Route: 048

REACTIONS (3)
  - Visual impairment [Unknown]
  - Neovascular age-related macular degeneration [Not Recovered/Not Resolved]
  - Neovascular age-related macular degeneration [Recovered/Resolved]

NARRATIVE: CASE EVENT DATE: 201601
